FAERS Safety Report 7915418-X (Version None)
Quarter: 2011Q4

REPORT INFORMATION
  Report Type: 
  Country: None (occurrence: None)
  Receive Date: 20111115
  Receipt Date: 20111110
  Transmission Date: 20120403
  Serious: Yes (Hospitalization)
  Sender: FDA-Public Use
  Company Number: JP-ABBOTT-11P-087-0715935-00

PATIENT
  Sex: Male
  Weight: 47.5 kg

DRUGS (9)
  1. HUMIRA [Suspect]
     Route: 058
     Dates: start: 20110617, end: 20110617
  2. LACTOBACILLUS CASEI [Concomitant]
     Indication: PROPHYLAXIS
     Route: 048
  3. LACTOBACILLUS CASEI [Concomitant]
     Indication: FLATULENCE
  4. HUMIRA [Suspect]
     Indication: CROHN'S DISEASE
     Route: 058
     Dates: start: 20110316, end: 20110316
  5. HUMIRA [Suspect]
     Dates: start: 20110603, end: 20110603
  6. MESALAMINE [Concomitant]
     Indication: CROHN'S DISEASE
     Route: 048
  7. LACTOBACILLUS CASEI [Concomitant]
  8. HUMIRA [Suspect]
     Route: 058
     Dates: start: 20110701
  9. AZATHIOPRINE [Concomitant]
     Indication: CROHN'S DISEASE
     Route: 048

REACTIONS (1)
  - INTESTINAL OBSTRUCTION [None]
